FAERS Safety Report 6370728-5 (Version None)
Quarter: 2009Q3

REPORT INFORMATION
  Report Type: 
  Country: None (occurrence: None)
  Receive Date: 20090923
  Receipt Date: 20070606
  Transmission Date: 20100115
  Serious: Yes (Hospitalization)
  Sender: FDA-Public Use
  Company Number: US-ASTRAZENECA-2006UW25056

PATIENT
  Age: 13912 Day
  Sex: Female
  Weight: 77.1 kg

DRUGS (19)
  1. SEROQUEL [Suspect]
     Indication: SCHIZOPHRENIA
     Route: 048
     Dates: start: 20010326
  2. SEROQUEL [Suspect]
     Indication: BIPOLAR DISORDER
     Route: 048
     Dates: start: 20010326
  3. SEROQUEL [Suspect]
     Indication: DEPRESSION
     Route: 048
     Dates: start: 20010326
  4. SEROQUEL [Suspect]
     Route: 048
     Dates: start: 20030101, end: 20060410
  5. SEROQUEL [Suspect]
     Route: 048
     Dates: start: 20030101, end: 20060410
  6. SEROQUEL [Suspect]
     Route: 048
     Dates: start: 20030101, end: 20060410
  7. DEPAKOTE [Concomitant]
  8. EFFEXOR [Concomitant]
  9. DEPAKOTE ER [Concomitant]
  10. TRAZODONE [Concomitant]
  11. TOPAMAX [Concomitant]
  12. DILANTIN [Concomitant]
  13. ATIVAN [Concomitant]
  14. MIDRIN [Concomitant]
  15. NORTRIPTYLINE HCL [Concomitant]
  16. LIPITOR [Concomitant]
  17. LOPID [Concomitant]
  18. GLUCOPHAGE [Concomitant]
  19. BUPROPION HCL [Concomitant]

REACTIONS (3)
  - CONVULSION [None]
  - DIABETES MELLITUS [None]
  - TYPE 2 DIABETES MELLITUS [None]
